FAERS Safety Report 4540522-6 (Version None)
Quarter: 2004Q4

REPORT INFORMATION
  Report Type: 
  Country: None (occurrence: None)
  Receive Date: 20041228
  Receipt Date: 20041228
  Transmission Date: 20050328
  Serious: Yes (Life-Threatening, Hospitalization)
  Sender: FDA-Public Use
  Company Number: None

PATIENT
  Age: 30 Year
  Sex: Male
  Weight: 67 kg

DRUGS (3)
  1. LAMICTAL [Suspect]
     Indication: CONVULSION
     Dosage: 150 MG PO /NGT BID
     Route: 048
     Dates: start: 20040617, end: 20040619
  2. ZOLOFT [Concomitant]
  3. BETASERON [Concomitant]

REACTIONS (1)
  - RHABDOMYOLYSIS [None]
